FAERS Safety Report 10950666 (Version 1)
Quarter: 2015Q1

REPORT INFORMATION
  Report Type: Spontaneous
  Country: JP (occurrence: JP)
  Receive Date: 20150324
  Receipt Date: 20150324
  Transmission Date: 20150721
  Serious: Yes (Hospitalization)
  Sender: FDA-Public Use
  Company Number: JP-PFIZER INC-2015096269

PATIENT
  Age: 70 Year
  Sex: Female

DRUGS (1)
  1. SUNITINIB MALATE [Suspect]
     Active Substance: SUNITINIB MALATE
     Indication: RENAL CELL CARCINOMA
     Dosage: UNK
     Route: 065
     Dates: start: 20110805, end: 20121003

REACTIONS (8)
  - Blood pressure increased [Unknown]
  - Glossitis [Unknown]
  - Pyrexia [Recovering/Resolving]
  - Platelet count decreased [Unknown]
  - Oxygen saturation decreased [Unknown]
  - Hepatic function abnormal [Unknown]
  - Decreased appetite [Unknown]
  - Blood albumin decreased [Unknown]
